FAERS Safety Report 21577578 (Version 3)
Quarter: 2022Q4

REPORT INFORMATION
  Report Type: Spontaneous
  Country: BA (occurrence: BA)
  Receive Date: 20221110
  Receipt Date: 20221128
  Transmission Date: 20230113
  Serious: Yes (Other)
  Sender: FDA-Public Use
  Company Number: BA-BAYER-2022P020209

PATIENT
  Sex: Female

DRUGS (7)
  1. EYLEA [Suspect]
     Active Substance: AFLIBERCEPT
     Indication: Diabetic retinal oedema
     Dosage: FIRST DOSE OD, SOLUTION FOR INJECTION (40 MG/ML)
     Route: 031
     Dates: start: 20220505, end: 20220505
  2. EYLEA [Suspect]
     Active Substance: AFLIBERCEPT
     Dosage: FIRST DOSE OS, SOLUTION FOR INJECTION (40 MG/ML)
     Route: 031
     Dates: start: 20220519, end: 20220519
  3. EYLEA [Suspect]
     Active Substance: AFLIBERCEPT
     Dosage: SECOND DOSE OD, SOLUTION FOR INJECTION (40 MG/ML)
     Route: 031
     Dates: start: 20220609, end: 20220609
  4. EYLEA [Suspect]
     Active Substance: AFLIBERCEPT
     Dosage: SECOND DOSE OS, SOLUTION FOR INJECTION (40 MG/ML)
     Route: 031
     Dates: start: 20220622, end: 20220622
  5. EYLEA [Suspect]
     Active Substance: AFLIBERCEPT
     Dosage: THIRD DOSE OS, SOLUTION FOR INJECTION (40 MG/ML)
     Route: 031
     Dates: start: 20220722, end: 20220722
  6. EYLEA [Suspect]
     Active Substance: AFLIBERCEPT
     Dosage: THIRD DOSE OD, SOLUTION FOR INJECTION (40 MG/ML)
     Route: 031
     Dates: start: 20221020, end: 20221020
  7. INSULIN NOS [Concomitant]
     Active Substance: INSULIN NOS
     Indication: Product used for unknown indication

REACTIONS (4)
  - Subretinal fluid [Not Recovered/Not Resolved]
  - Retinal oedema [Not Recovered/Not Resolved]
  - Macular thickening [Not Recovered/Not Resolved]
  - Visual acuity reduced [Not Recovered/Not Resolved]
